FAERS Safety Report 9897902 (Version 1)
Quarter: 2014Q1

REPORT INFORMATION
  Report Type: Spontaneous
  Country: US (occurrence: US)
  Receive Date: 20140214
  Receipt Date: 20140214
  Transmission Date: 20141002
  Serious: No
  Sender: FDA-Public Use
  Company Number: US-PFIZER INC-2014041617

PATIENT
  Age: 25 Year
  Sex: Male
  Weight: 113.38 kg

DRUGS (1)
  1. SERTRALINE HCL [Suspect]
     Indication: ANXIETY
     Dosage: 25 MG, DAILY
     Dates: start: 2012, end: 2012

REACTIONS (1)
  - Headache [Unknown]
